FAERS Safety Report 14007045 (Version 1)
Quarter: 2017Q3

REPORT INFORMATION
  Report Type: Spontaneous
  Country: US (occurrence: US)
  Receive Date: 20170922
  Receipt Date: 20170922
  Transmission Date: 20171128
  Serious: Yes (Hospitalization)
  Sender: FDA-Public Use
  Company Number: None

PATIENT
  Sex: Male
  Weight: 94.5 kg

DRUGS (7)
  1. HYDROCLOROTHIAZIDE [Concomitant]
     Active Substance: HYDROCHLOROTHIAZIDE
  2. DIOVAN [Concomitant]
     Active Substance: VALSARTAN
  3. AMLODIPINE [Concomitant]
     Active Substance: AMLODIPINE BESYLATE
  4. NEMENDA [Concomitant]
  5. TAMULOSIN [Concomitant]
     Active Substance: TAMSULOSIN
  6. DONEPEZIL. [Suspect]
     Active Substance: DONEPEZIL
     Indication: MEMORY IMPAIRMENT
     Route: 048
     Dates: start: 20100520, end: 20170911
  7. ELIQUIS [Concomitant]
     Active Substance: APIXABAN

REACTIONS (12)
  - Cough [None]
  - Asthenia [None]
  - Dyspnoea [None]
  - Pulmonary congestion [None]
  - Speech disorder [None]
  - Body temperature decreased [None]
  - Confusional state [None]
  - Heart rate decreased [None]
  - Therapy cessation [None]
  - Cardiac disorder [None]
  - Peripheral swelling [None]
  - Chronic obstructive pulmonary disease [None]

NARRATIVE: CASE EVENT DATE: 20170911
